FAERS Safety Report 24531323 (Version 1)
Quarter: 2024Q4

REPORT INFORMATION
  Report Type: Spontaneous
  Country: US (occurrence: US)
  Receive Date: 20241022
  Receipt Date: 20241022
  Transmission Date: 20250115
  Serious: No
  Sender: ROCHE
  Company Number: US-ROCHE-3511470

PATIENT

DRUGS (4)
  1. PULMOZYME [Suspect]
     Active Substance: DORNASE ALFA
     Indication: Pleurodesis
     Route: 034
  2. PULMOZYME [Suspect]
     Active Substance: DORNASE ALFA
     Indication: Pleural decortication
  3. ALTEPLASE [Suspect]
     Active Substance: ALTEPLASE
     Indication: Pleurodesis
     Route: 034
  4. ALTEPLASE [Suspect]
     Active Substance: ALTEPLASE
     Indication: Pleural decortication

REACTIONS (3)
  - Off label use [Unknown]
  - Off label use [Unknown]
  - No adverse event [Unknown]
